FAERS Safety Report 19268127 (Version 2)
Quarter: 2021Q3

REPORT INFORMATION
  Report Type: Report from Study
  Country: US (occurrence: US)
  Receive Date: 20210517
  Receipt Date: 20210818
  Transmission Date: 20211014
  Serious: Yes (Other)
  Sender: FDA-Public Use
  Company Number: US-OTSUKA-2021_016194

PATIENT
  Sex: Female
  Weight: 73.03 kg

DRUGS (1)
  1. CEDAZURIDINE AND DECITABINE [Suspect]
     Active Substance: CEDAZURIDINE\DECITABINE
     Indication: MYELOPROLIFERATIVE NEOPLASM
     Dosage: (35 MG DECITABINE AND 100 MG CEDAZURIDINE), QD (1?5 DAYS) OF 28 DAY CYCLE
     Route: 048
     Dates: start: 20200201, end: 202106

REACTIONS (3)
  - Anti-erythrocyte antibody positive [Unknown]
  - Haemoglobin decreased [Not Recovered/Not Resolved]
  - Product use in unapproved indication [Unknown]
